FAERS Safety Report 14532288 (Version 4)
Quarter: 2018Q1

REPORT INFORMATION
  Report Type: Report from Study
  Country: CO (occurrence: CO)
  Receive Date: 20180214
  Receipt Date: 20180313
  Transmission Date: 20180509
  Serious: Yes (Other)
  Sender: FDA-Public Use
  Company Number: PHHY2017CO191104

PATIENT
  Sex: Male
  Weight: 72 kg

DRUGS (3)
  1. LUCENTIS [Suspect]
     Active Substance: RANIBIZUMAB
     Indication: MACULAR OEDEMA
     Dosage: 0.5 MG, QMO (STOPPED 2 YEARS AGO)
     Route: 047
     Dates: start: 20150502
  2. METFORMIN [Suspect]
     Active Substance: METFORMIN HYDROCHLORIDE
     Indication: DIABETES MELLITUS
     Dosage: 800 MG, QD
     Route: 048
  3. TEGRETOL [Suspect]
     Active Substance: CARBAMAZEPINE
     Indication: PRODUCT USED FOR UNKNOWN INDICATION
     Route: 065

REACTIONS (7)
  - Blindness [Unknown]
  - Hypoaesthesia [Unknown]
  - Tension [Unknown]
  - Hypertension [Unknown]
  - Pain in extremity [Unknown]
  - Visual impairment [Unknown]
  - Peripheral swelling [Unknown]
